FAERS Safety Report 25503621 (Version 2)
Quarter: 2025Q3

REPORT INFORMATION
  Report Type: Spontaneous
  Country: EU (occurrence: EU)
  Receive Date: 20250702
  Receipt Date: 20250728
  Transmission Date: 20251020
  Serious: Yes (Life-Threatening, Hospitalization, Other)
  Sender: AUROBINDO
  Company Number: EU-MLMSERVICE-20250613-PI540589-00202-1

PATIENT
  Age: 57 Year
  Sex: Female

DRUGS (7)
  1. LINEZOLID [Suspect]
     Active Substance: LINEZOLID
     Indication: Listeriosis
     Dosage: 600 MILLIGRAM, TWO TIMES A DAY
     Route: 048
     Dates: start: 202310
  2. LINEZOLID [Suspect]
     Active Substance: LINEZOLID
     Indication: Device related infection
  3. LINEZOLID [Suspect]
     Active Substance: LINEZOLID
     Indication: Arthritis infective
  4. AMPICILLIN [Concomitant]
     Active Substance: AMPICILLIN
     Indication: Listeriosis
     Dosage: 2 GRAM, EVERY FOUR HOUR
     Route: 042
     Dates: start: 202310
  5. AMPICILLIN [Concomitant]
     Active Substance: AMPICILLIN
     Indication: Device related infection
  6. AMPICILLIN [Concomitant]
     Active Substance: AMPICILLIN
     Indication: Arthritis infective
  7. AZATHIOPRINE [Concomitant]
     Active Substance: AZATHIOPRINE
     Indication: Systemic lupus erythematosus
     Route: 065

REACTIONS (6)
  - Listeriosis [Recovered/Resolved]
  - Bacteraemia [Recovered/Resolved]
  - Arthritis infective [Recovered/Resolved]
  - Device related infection [Recovered/Resolved]
  - Infection [Recovered/Resolved]
  - Anaemia [Unknown]

NARRATIVE: CASE EVENT DATE: 20231001
